FAERS Safety Report 14676351 (Version 1)
Quarter: 2018Q1

REPORT INFORMATION
  Report Type: Spontaneous
  Country: US (occurrence: US)
  Receive Date: 20180323
  Receipt Date: 20180323
  Transmission Date: 20180509
  Serious: Yes (Life-Threatening)
  Sender: FDA-Public Use
  Company Number: None

PATIENT
  Age: 55 Year
  Sex: Female
  Weight: 58.97 kg

DRUGS (24)
  1. ZANTAC [Concomitant]
     Active Substance: RANITIDINE HYDROCHLORIDE
  2. XYZAL [Concomitant]
     Active Substance: LEVOCETIRIZINE DIHYDROCHLORIDE
  3. PROBOTIC ACIDOPHILUS [Concomitant]
  4. PHENTERMINE. [Concomitant]
     Active Substance: PHENTERMINE
  5. L-LYSINE [Concomitant]
     Active Substance: LYSINE
  6. RANEXA [Concomitant]
     Active Substance: RANOLAZINE
  7. POTASSIUM CL [Concomitant]
     Active Substance: POTASSIUM CHLORIDE
  8. ASPIRIN EC [Concomitant]
     Active Substance: ASPIRIN
  9. VITAMIN C [Concomitant]
     Active Substance: ASCORBIC ACID
  10. REQUIP [Concomitant]
     Active Substance: ROPINIROLE HYDROCHLORIDE
  11. NORCO [Concomitant]
     Active Substance: ACETAMINOPHEN\HYDROCODONE BITARTRATE
  12. REPATHA [Suspect]
     Active Substance: EVOLOCUMAB
     Indication: BLOOD CHOLESTEROL INCREASED
     Route: 058
     Dates: start: 20180124
  13. NORVASC [Concomitant]
     Active Substance: AMLODIPINE BESYLATE
  14. VITAMIN D2 [Concomitant]
     Active Substance: ERGOCALCIFEROL
  15. PROTONIX [Concomitant]
     Active Substance: PANTOPRAZOLE SODIUM
  16. SINGULAIR [Concomitant]
     Active Substance: MONTELUKAST SODIUM
  17. FLONASE [Concomitant]
     Active Substance: FLUTICASONE PROPIONATE
  18. FLEXRIL [Concomitant]
  19. LASIX [Concomitant]
     Active Substance: FUROSEMIDE
  20. NITROQUICK [Concomitant]
     Active Substance: NITROGLYCERIN
  21. MAGNESIUM OXIDE. [Concomitant]
     Active Substance: MAGNESIUM OXIDE
  22. XANAX [Concomitant]
     Active Substance: ALPRAZOLAM
  23. PLAVIX [Concomitant]
     Active Substance: CLOPIDOGREL BISULFATE
  24. PHENEGAN [Concomitant]

REACTIONS (5)
  - Drug interaction [None]
  - Swelling [None]
  - Chest pain [None]
  - Dyspnoea [None]
  - Anaphylactic shock [None]

NARRATIVE: CASE EVENT DATE: 20180202
